FAERS Safety Report 25180394 (Version 2)
Quarter: 2025Q2

REPORT INFORMATION
  Report Type: Spontaneous
  Country: US (occurrence: US)
  Receive Date: 20250409
  Receipt Date: 20250425
  Transmission Date: 20250716
  Serious: No
  Sender: ALKEM
  Company Number: US-ALKEM LABORATORIES LIMITED-US-ALKEM-2025-03546

PATIENT
  Age: 62 Year
  Sex: Male
  Weight: 81.633 kg

DRUGS (1)
  1. FINASTERIDE [Suspect]
     Active Substance: FINASTERIDE
     Indication: Alopecia
     Dosage: 1 DOSAGE FORM, OD
     Route: 065
     Dates: end: 202303

REACTIONS (1)
  - Haematospermia [Recovering/Resolving]
